FAERS Safety Report 6618922-X (Version None)
Quarter: 2010Q1

REPORT INFORMATION
  Report Type: 
  Country: None (occurrence: None)
  Receive Date: 20100305
  Receipt Date: 20100305
  Transmission Date: 20100710
  Serious: Yes (Life-Threatening, Hospitalization)
  Sender: FDA-Public Use
  Company Number: None

PATIENT
  Age: 63 Year
  Sex: Female
  Weight: 76.6579 kg

DRUGS (1)
  1. LYRICA [Suspect]

REACTIONS (2)
  - PAIN [None]
  - UNEVALUABLE EVENT [None]
